FAERS Safety Report 9725610 (Version 4)
Quarter: 2014Q1

REPORT INFORMATION
  Report Type: Spontaneous
  Country: US (occurrence: None)
  Receive Date: 20131127
  Receipt Date: 20140122
  Transmission Date: 20141002
  Serious: Yes (Hospitalization)
  Sender: FDA-Public Use
  Company Number: 2013US002846

PATIENT
  Age: 62 Year
  Sex: Male
  Weight: 83 kg

DRUGS (6)
  1. PONATINIB [Suspect]
     Indication: CHRONIC MYELOID LEUKAEMIA
     Route: 048
     Dates: start: 20130213, end: 20131028
  2. VALTREX (VALACICLOVIR HYDROCHLORIDE) [Concomitant]
  3. ASPIRIN (ASPIRIN) [Concomitant]
  4. LISINOPRIL (LISINOPRIL) [Concomitant]
  5. TRAMADOL (TRAMADOL HYDROCHLORIDE) [Concomitant]
  6. PLAVIX (CLOPIDOGREL BISULFATE) [Concomitant]

REACTIONS (8)
  - Peripheral artery stenosis [None]
  - White blood cell count increased [None]
  - High density lipoprotein decreased [None]
  - Haemoglobin decreased [None]
  - Haematocrit decreased [None]
  - Blood pressure systolic increased [None]
  - Femoral artery occlusion [None]
  - Heart rate increased [None]
